FAERS Safety Report 6536779-2 (Version None)
Quarter: 2010Q1

REPORT INFORMATION
  Report Type: 
  Country: None (occurrence: None)
  Receive Date: 20100113
  Receipt Date: 20100104
  Transmission Date: 20100710
  Serious: Yes (Hospitalization)
  Sender: FDA-Public Use
  Company Number: FR-ABBOTT-10P-056-0617423-00

PATIENT
  Age: 65 Year
  Sex: Female

DRUGS (6)
  1. DEPAKENE [Interacting]
     Indication: EPILEPSY
     Route: 048
     Dates: start: 20070101
  2. PHENOBARBITAL TAB [Interacting]
     Indication: EPILEPSY
     Route: 048
     Dates: start: 20070101, end: 20090410
  3. ACEPROMETAZINE W/MEPROBAMATE [Suspect]
     Indication: INSOMNIA
     Route: 048
     Dates: start: 20090324, end: 20090410
  4. THERALENE [Suspect]
     Indication: INSOMNIA
     Route: 048
     Dates: start: 20090324, end: 20090410
  5. ACTISKENAN [Suspect]
     Indication: BACK PAIN
     Route: 048
     Dates: start: 20090403, end: 20090410
  6. ALPRAZOLAM [Suspect]
     Indication: ANXIETY
     Route: 048
     Dates: start: 20090324, end: 20090410

REACTIONS (5)
  - CONFUSIONAL STATE [None]
  - DIZZINESS [None]
  - DRUG INTERACTION [None]
  - DRUG LEVEL INCREASED [None]
  - FALL [None]
